FAERS Safety Report 4848919-1 (Version None)
Quarter: 2005Q4

REPORT INFORMATION
  Report Type: 
  Country: None (occurrence: None)
  Receive Date: 20051121
  Receipt Date: 20041019
  Transmission Date: 20060501
  Serious: Yes (Hospitalization)
  Sender: FDA-Public Use
  Company Number: 20041000461

PATIENT
  Age: 11 Year
  Sex: Male
  Weight: 32.7 kg

DRUGS (6)
  1. SUPRANE [Suspect]
     Indication: ANAESTHESIA
     Dosage: 9.20 PCT; ONCE; IH
     Route: 055
     Dates: start: 20040520, end: 20040520
  2. BUPIVACAINE HCL [Concomitant]
  3. CEFAZOLIN [Concomitant]
  4. MARCAINE [Concomitant]
  5. DOLASETRON [Concomitant]
  6. MORPHINE [Concomitant]

REACTIONS (2)
  - NAUSEA [None]
  - VOMITING [None]
